FAERS Safety Report 24533889 (Version 2)
Quarter: 2024Q4

REPORT INFORMATION
  Report Type: Spontaneous
  Country: GB (occurrence: GB)
  Receive Date: 20241022
  Receipt Date: 20241106
  Transmission Date: 20250115
  Serious: Yes (Other)
  Sender: NOVARTIS
  Company Number: None

PATIENT
  Age: 39 Year
  Sex: Female

DRUGS (1)
  1. FINGOLIMOD [Suspect]
     Active Substance: FINGOLIMOD
     Indication: Multiple sclerosis
     Dosage: 0.5 MG, QD, (0.5MG DAILY)
     Route: 065

REACTIONS (3)
  - Medication error [Unknown]
  - Eczema [Unknown]
  - Product substitution error [Unknown]

NARRATIVE: CASE EVENT DATE: 20241016
